FAERS Safety Report 8081722-0 (Version None)
Quarter: 2012Q1

REPORT INFORMATION
  Report Type: 
  Country: None (occurrence: None)
  Receive Date: 20120130
  Receipt Date: 20120123
  Transmission Date: 20120608
  Serious: Yes (Death, Life-Threatening, Hospitalization)
  Sender: FDA-Public Use
  Company Number: DE-PFIZER INC-2009270757

PATIENT
  Age: 69 Year
  Sex: Male
  Weight: 97 kg

DRUGS (8)
  1. ALISKIREN [Concomitant]
  2. ZOMETA [Concomitant]
  3. AMLODIPINE [Concomitant]
  4. SUNITINIB MALATE [Suspect]
     Indication: PROSTATE CANCER METASTATIC
     Dosage: 37.5 MG, 1X/DAY
     Route: 048
     Dates: start: 20090728, end: 20090916
  5. PREDNISOLONE [Suspect]
     Indication: PROSTATE CANCER METASTATIC
     Dosage: 5 MG, 2X/DAY
     Route: 048
     Dates: start: 20090728, end: 20090916
  6. CELEBREX [Concomitant]
  7. RAMIPRIL [Concomitant]
  8. OMEPRAZOLE [Concomitant]

REACTIONS (2)
  - PNEUMONIA [None]
  - ANAEMIA [None]
